FAERS Safety Report 8461473-0 (Version None)
Quarter: 2012Q2

REPORT INFORMATION
  Report Type: 
  Country: None (occurrence: None)
  Receive Date: 20120625
  Receipt Date: 20120615
  Transmission Date: 20120825
  Serious: Yes (Other)
  Sender: FDA-Public Use
  Company Number: US-US-EMD SERONO, INC.-7135079

PATIENT
  Sex: Female
  Weight: 82 kg

DRUGS (4)
  1. LOVASTATIN [Concomitant]
     Indication: HYPERLIPIDAEMIA
     Dates: start: 20111009
  2. LISINOPRIL [Concomitant]
     Indication: HYPERTENSION
     Dates: start: 20120508
  3. WELLBUTRIN SR [Concomitant]
     Indication: DEPRESSION
     Dates: end: 20090323
  4. REBIF [Suspect]
     Indication: MULTIPLE SCLEROSIS
     Route: 058
     Dates: start: 20091003

REACTIONS (3)
  - CHEST PAIN [None]
  - HEADACHE [None]
  - PAIN IN EXTREMITY [None]
